FAERS Safety Report 21601549 (Version 1)
Quarter: 2022Q4

REPORT INFORMATION
  Report Type: Spontaneous
  Country: US (occurrence: None)
  Receive Date: 20221115
  Receipt Date: 20221115
  Transmission Date: 20230113
  Serious: No
  Sender: FDA-Public Use
  Company Number: None

PATIENT
  Age: 73 Year
  Sex: Female
  Weight: 45.09 kg

DRUGS (21)
  1. PIQRAY [Suspect]
     Active Substance: ALPELISIB
     Indication: Breast cancer female
     Dosage: FREQUENCY : DAILY;?
     Route: 048
  2. AFINITOR [Concomitant]
     Active Substance: EVEROLIMUS
  3. VITAMIN B COMPLEX [Concomitant]
     Active Substance: CYANOCOBALAMIN\DEXPANTHENOL\NIACINAMIDE\PYRIDOXINE HYDROCHLORIDE\RIBOFLAVIN 5^-PHOSPHATE SODIUM\THIA
  4. CALCIUM [Concomitant]
     Active Substance: CALCIUM
  5. CIPRO [Concomitant]
     Active Substance: CIPROFLOXACIN HYDROCHLORIDE
  6. EXEMESTANE [Concomitant]
     Active Substance: EXEMESTANE
  7. FERROU SULFATE [Concomitant]
  8. FUROSEMIDE [Concomitant]
     Active Substance: FUROSEMIDE
  9. LOPERAMIDE [Concomitant]
     Active Substance: LOPERAMIDE
  10. MIRTAZAPINE [Concomitant]
     Active Substance: MIRTAZAPINE
  11. NORCO [Concomitant]
     Active Substance: ACETAMINOPHEN\HYDROCODONE BITARTRATE
  12. ONDANSETRON [Concomitant]
     Active Substance: ONDANSETRON
  13. PROCHLORPERAZINE [Concomitant]
     Active Substance: PROCHLORPERAZINE
  14. SPIRONOLACTONE [Concomitant]
     Active Substance: SPIRONOLACTONE
  15. TRAIMCINOLONE [Concomitant]
  16. HERBALS\TURMERIC [Concomitant]
     Active Substance: HERBALS\TURMERIC
  17. VALIUM [Concomitant]
     Active Substance: DIAZEPAM
  18. VITAMIN B6 [Concomitant]
     Active Substance: PYRIDOXINE HYDROCHLORIDE
  19. VITAMIN C [Concomitant]
     Active Substance: ASCORBIC ACID
  20. VITAMIN D3 [Concomitant]
     Active Substance: CHOLECALCIFEROL
  21. ZINC [Concomitant]
     Active Substance: ZINC

REACTIONS (3)
  - Asthenia [None]
  - General physical health deterioration [None]
  - Drug ineffective [None]
